FAERS Safety Report 8786436 (Version 1)
Quarter: 2012Q4

REPORT INFORMATION
  Report Type: 
  Country: DE (occurrence: DE)
  Receive Date: 20120914
  Receipt Date: 20120914
  Transmission Date: 20130627
  Serious: Yes (Other)
  Sender: FDA-Public Use
  Company Number: DE-PFIZER INC-2012225552

PATIENT
  Sex: Female

DRUGS (1)
  1. LYRICA [Suspect]
     Dosage: 225 mg, 2x/day
     Route: 050
     Dates: start: 2012

REACTIONS (2)
  - Exposure via partner [Unknown]
  - Abortion spontaneous [Unknown]
